FAERS Safety Report 25488712 (Version 1)
Quarter: 2025Q2

REPORT INFORMATION
  Report Type: Report from Study
  Country: MX (occurrence: MX)
  Receive Date: 20250627
  Receipt Date: 20250627
  Transmission Date: 20250716
  Serious: Yes (Hospitalization, Other)
  Sender: NOVARTIS
  Company Number: MX-002147023-NVSC2025MX094911

PATIENT
  Age: 50 Year
  Sex: Male
  Weight: 65 kg

DRUGS (1)
  1. IMATINIB [Suspect]
     Active Substance: IMATINIB
     Indication: Chronic myeloid leukaemia
     Dosage: 2 DOSAGE FORM OF 100MG, Q12H
     Route: 048
     Dates: start: 2018, end: 20250519

REACTIONS (6)
  - Haematochezia [Recovered/Resolved]
  - Haemoglobin decreased [Recovering/Resolving]
  - White blood cell disorder [Recovering/Resolving]
  - Weight decreased [Recovering/Resolving]
  - Loss of therapeutic response [Not Recovered/Not Resolved]
  - Off label use [Unknown]

NARRATIVE: CASE EVENT DATE: 20241201
